FAERS Safety Report 4995314-0 (Version None)
Quarter: 2006Q2

REPORT INFORMATION
  Report Type: 
  Country: None (occurrence: None)
  Receive Date: 20060503
  Receipt Date: 20060417
  Transmission Date: 20061013
  Serious: Yes (Other)
  Sender: FDA-Public Use
  Company Number: 145395USA

PATIENT
  Age: 7 Year
  Sex: Male

DRUGS (8)
  1. SALBUTAMOL SULFATE [Suspect]
     Indication: MULTIPLE ALLERGIES
     Dates: start: 20050513
  2. FLOVENT [Suspect]
     Indication: MULTIPLE ALLERGIES
     Dates: start: 20050513
  3. CETIRIZINE HCL [Suspect]
     Indication: MULTIPLE ALLERGIES
     Dates: start: 20050424
  4. BUDESONIDE [Concomitant]
  5. AZITHROMYCIN [Concomitant]
  6. MONTELUKAST SODIUM [Concomitant]
  7. AMOXICILLIN TRIHYDRATE/CLVULANATE POTASSIUM [Concomitant]
  8. OLOPATADINE HCL [Concomitant]

REACTIONS (10)
  - ABNORMAL BEHAVIOUR [None]
  - AGGRESSION [None]
  - ANXIETY [None]
  - CHOKING [None]
  - DISTURBANCE IN ATTENTION [None]
  - DRUG INTERACTION [None]
  - EDUCATIONAL PROBLEM [None]
  - IRRITABILITY [None]
  - PERSONALITY CHANGE [None]
  - VISION BLURRED [None]
